FAERS Safety Report 8716011 (Version 3)
Quarter: 2012Q4

REPORT INFORMATION
  Report Type: 
  Country: JP (occurrence: JP)
  Receive Date: 20120809
  Receipt Date: 20121016
  Transmission Date: 20130627
  Serious: Yes (Other)
  Sender: FDA-Public Use
  Company Number: JP-ABBOTT-12P-087-0963718-00

PATIENT
  Age: 8 Year
  Sex: Female

DRUGS (11)
  1. VALPROIC ACID [Suspect]
     Indication: INFANTILE SPASMS
  2. PHENOBARBITAL [Suspect]
     Indication: INFANTILE SPASMS
  3. TOPIRAMATE [Suspect]
     Indication: INFANTILE SPASMS
  4. PHENYTOIN [Suspect]
     Indication: INFANTILE SPASMS
  5. CARBAMAZEPINE [Suspect]
     Indication: INFANTILE SPASMS
  6. LAMOTRIGINE [Suspect]
     Indication: INFANTILE SPASMS
  7. CLONAZEPAM [Suspect]
     Indication: INFANTILE SPASMS
  8. DIAZEPAM [Suspect]
     Indication: INFANTILE SPASMS
  9. CORTICOTROPIN [Concomitant]
     Indication: INFANTILE SPASMS
  10. POTASSIUM BROMIDE [Concomitant]
     Indication: INFANTILE SPASMS
  11. BENZODIAZEPINE DERIVATIVES [Concomitant]
     Indication: PRODUCT USED FOR UNKNOWN INDICATION

REACTIONS (2)
  - Atonic seizures [Recovered/Resolved]
  - Drug ineffective [Unknown]
